FAERS Safety Report 18345649 (Version 1)
Quarter: 2020Q4

REPORT INFORMATION
  Report Type: Spontaneous
  Country: US (occurrence: US)
  Receive Date: 20201005
  Receipt Date: 20201005
  Transmission Date: 20210114
  Serious: Yes (Hospitalization, Other)
  Sender: FDA-Public Use
  Company Number: US-NOVOPROD-756487

PATIENT
  Sex: Female

DRUGS (1)
  1. NOVOLIN 70/30 [Suspect]
     Active Substance: INSULIN HUMAN
     Indication: PRODUCT USED FOR UNKNOWN INDICATION
     Dosage: UNK
     Route: 065

REACTIONS (8)
  - Carpal tunnel syndrome [Recovering/Resolving]
  - Aphonia [Not Recovered/Not Resolved]
  - Product dose omission issue [Unknown]
  - Cardiovascular insufficiency [Unknown]
  - Carpal tunnel syndrome [Unknown]
  - Condition aggravated [Recovering/Resolving]
  - Condition aggravated [Unknown]
  - Neck injury [Not Recovered/Not Resolved]

NARRATIVE: CASE EVENT DATE: 2019
